FAERS Safety Report 20494790 (Version 1)
Quarter: 2022Q1

REPORT INFORMATION
  Report Type: Spontaneous
  Country: NL (occurrence: NL)
  Receive Date: 20220221
  Receipt Date: 20220221
  Transmission Date: 20220423
  Serious: Yes (Death, Other)
  Sender: FDA-Public Use
  Company Number: NL-GYP-001024

PATIENT
  Age: 62 Year
  Sex: Male

DRUGS (1)
  1. PREDNISONE [Suspect]
     Active Substance: PREDNISONE
     Indication: Atheroembolism
     Route: 065

REACTIONS (6)
  - Atheroembolism [Unknown]
  - Disease progression [Unknown]
  - Drug ineffective for unapproved indication [Unknown]
  - Sepsis [Fatal]
  - Renal failure [Fatal]
  - Multiple organ dysfunction syndrome [Fatal]
